FAERS Safety Report 4569825-6 (Version None)
Quarter: 2005Q1

REPORT INFORMATION
  Report Type: 
  Country: None (occurrence: None)
  Receive Date: 20050203
  Receipt Date: 20041103
  Transmission Date: 20050727
  Serious: Yes (Life-Threatening, Hospitalization)
  Sender: FDA-Public Use
  Company Number: DE-MERCK-0411DEU00053

PATIENT
  Age: 65 Year
  Sex: Male
  Weight: 77 kg

DRUGS (11)
  1. VIOXX [Suspect]
     Route: 048
     Dates: start: 20000204, end: 20000101
  2. VIOXX [Suspect]
     Route: 048
     Dates: start: 20040301, end: 20040701
  3. CELECOXIB [Concomitant]
     Route: 065
     Dates: start: 20020130, end: 20021220
  4. CELECOXIB [Concomitant]
     Route: 048
     Dates: start: 20040101, end: 20040201
  5. CANDESARTAN CILEXETIL [Concomitant]
     Indication: HYPERTENSION
     Route: 065
     Dates: start: 19990101
  6. VALDECOXIB [Concomitant]
     Route: 065
     Dates: start: 20030813, end: 20040101
  7. HYDROCHLOROTHIAZIDE AND TRIAMTERENE [Concomitant]
     Route: 065
     Dates: start: 19990101
  8. ALLOPURINOL [Concomitant]
     Indication: GOUT
     Route: 065
     Dates: start: 20020101
  9. ATORVASTATIN CALCIUM [Concomitant]
     Indication: HYPERCHOLESTEROLAEMIA
     Route: 065
     Dates: start: 19950101
  10. VITAMINS (UNSPECIFIED) [Concomitant]
     Route: 065
     Dates: start: 19950101
  11. GINKGO BILOBA EXTRACT [Concomitant]
     Route: 065
     Dates: start: 19990101

REACTIONS (2)
  - ATRIAL FIBRILLATION [None]
  - GASTRIC ULCER HAEMORRHAGE [None]
